FAERS Safety Report 8796196 (Version 1)
Quarter: 2012Q4

REPORT INFORMATION
  Report Type: 
  Country: US (occurrence: US)
  Receive Date: 20120920
  Receipt Date: 20120920
  Transmission Date: 20130627
  Serious: Yes (Death)
  Sender: FDA-Public Use
  Company Number: US-PFIZER INC-2012229647

PATIENT
  Age: 70 Year
  Sex: Female

DRUGS (2)
  1. VFEND [Suspect]
     Indication: LIVER TRANSPLANT
     Dosage: 200 mg, 2x/day
     Dates: start: 20120104
  2. VFEND [Suspect]
     Indication: RENAL TRANSPLANT

REACTIONS (1)
  - Death [Fatal]
